FAERS Safety Report 6699080-2 (Version None)
Quarter: 2010Q2

REPORT INFORMATION
  Report Type: 
  Country: None (occurrence: None)
  Receive Date: 20100427
  Receipt Date: 20100415
  Transmission Date: 20101027
  Serious: Yes (Hospitalization, Other)
  Sender: FDA-Public Use
  Company Number: US-GENZYME-RENA-1000693

PATIENT
  Age: 88 Year
  Sex: Female

DRUGS (1)
  1. RENVELA [Suspect]
     Indication: HYPERPHOSPHATAEMIA
     Dosage: 1.6 G, TID
     Route: 048

REACTIONS (3)
  - FOREIGN BODY ASPIRATION [None]
  - ORAL ADMINISTRATION COMPLICATION [None]
  - URINE OUTPUT DECREASED [None]
